FAERS Safety Report 9175411 (Version 1)
Quarter: 2013Q1

REPORT INFORMATION
  Report Type: Report from Study
  Country: US (occurrence: US)
  Receive Date: 20130320
  Receipt Date: 20130320
  Transmission Date: 20140127
  Serious: Yes (Hospitalization)
  Sender: FDA-Public Use
  Company Number: US-BAYER-2013-032430

PATIENT
  Sex: Female

DRUGS (1)
  1. STIVARGA [Suspect]
     Indication: COLON CANCER
     Dosage: 160MG PER DAY FOR 21 DAYS, THEN 7 DAYS OFF
     Route: 048
     Dates: start: 20130211, end: 20130220

REACTIONS (6)
  - Rash [None]
  - Dyspnoea [None]
  - Palmar-plantar erythrodysaesthesia syndrome [None]
  - Pain [None]
  - Paranasal sinus discomfort [None]
  - Rhinalgia [None]
